FAERS Safety Report 15673014 (Version 1)
Quarter: 2018Q4

REPORT INFORMATION
  Report Type: Spontaneous
  Country: CH (occurrence: CH)
  Receive Date: 20181129
  Receipt Date: 20181129
  Transmission Date: 20190205
  Serious: Yes (Hospitalization)
  Sender: FDA-Public Use
  Company Number: CH-009507513-1811CHE011509

PATIENT
  Age: 80 Year
  Sex: Male

DRUGS (10)
  1. CARBOPLATIN. [Suspect]
     Active Substance: CARBOPLATIN
     Dosage: CARBOPLATIN 544 MG I.V /ALIMTA 991 MG I.V./KEYTRUDA 200 MG AM 16.08. UND 06.09.2018 ; CYCLICAL
     Route: 041
     Dates: start: 20180816, end: 20180906
  2. VITARUBIN (HYDROXOCOBALAMIN ACETATE) [Concomitant]
     Dosage: 1 MILLIGRAM, QW
     Route: 030
  3. ALIMTA [Suspect]
     Active Substance: PEMETREXED DISODIUM
     Dosage: CYCLUS ALLE 3 WOCHEN ; CYCLICAL
     Route: 041
     Dates: start: 20180705, end: 20180726
  4. CARBOPLATIN. [Suspect]
     Active Substance: CARBOPLATIN
     Dosage: CARBOPLATIN 558 MG I.V./ALIMTA 986 MG I.V. AM 05.07.2018, 26.07.2018 ; CYCLICAL
     Route: 041
     Dates: start: 20180705, end: 20180726
  5. FORTECORTIN [Concomitant]
     Active Substance: DEXAMETHASONE
     Dosage: FORTECORTIN 8MG PO TAG 1, FORTECORTIN 4 MG TAG 2,3 DES ZYKLUS ; CYCLICAL
     Route: 048
     Dates: start: 20180705, end: 20181018
  6. ALIMTA [Suspect]
     Active Substance: PEMETREXED DISODIUM
     Dosage: CYCLUS ALLE 3 WOCHEN 16.08., 06.09.2018, 27.09. UND 18.10.2018 ; CYCLICAL
     Route: 041
     Dates: start: 20180816, end: 20181018
  7. ANDREAFOL [Concomitant]
     Dosage: 0.4 MILLIGRAM, QD
     Route: 048
  8. ALOXI [Concomitant]
     Active Substance: PALONOSETRON HYDROCHLORIDE
     Dosage: CYCLICAL
     Route: 040
     Dates: start: 20180705, end: 20181018
  9. KEYTRUDA [Suspect]
     Active Substance: PEMBROLIZUMAB
     Dosage: KEYTRUDA 200 MG AM 16.08. UND 06.09.2018, 27.09. UND 18.10.2018, AUSSERDEM PALLIATIVE RADIOTHERAP...
     Route: 041
     Dates: start: 20180816, end: 20181018
  10. FORTECORTIN [Concomitant]
     Active Substance: DEXAMETHASONE
     Dosage: FORTECORTIN 8MG PO TAG 1, FORTECORTIN 4 MG TAG 2,3 DES ZYKLUS ; CYCLICAL
     Route: 048
     Dates: start: 20180705, end: 20181018

REACTIONS (2)
  - Myocarditis [Recovering/Resolving]
  - Radiation interaction [Recovering/Resolving]

NARRATIVE: CASE EVENT DATE: 20181108
